FAERS Safety Report 7106505-7 (Version None)
Quarter: 2010Q4

REPORT INFORMATION
  Report Type: 
  Country: None (occurrence: None)
  Receive Date: 20101116
  Receipt Date: 20101109
  Transmission Date: 20110411
  Serious: Yes (Death)
  Sender: FDA-Public Use
  Company Number: VE-PFIZER INC-2010140730

PATIENT
  Age: 71 Year
  Sex: Female

DRUGS (3)
  1. LIPITOR [Suspect]
     Indication: CEREBROVASCULAR ACCIDENT
     Dosage: 20 MG, 1X/DAY
     Route: 048
     Dates: start: 20050101
  2. SOMAZINA [Concomitant]
     Dosage: UNK
     Route: 048
  3. TRANGOREX [Concomitant]
     Indication: HYPERTENSION
     Dosage: UNK
     Route: 048

REACTIONS (1)
  - RESPIRATORY ARREST [None]
